FAERS Safety Report 6907850-8 (Version None)
Quarter: 2010Q3

REPORT INFORMATION
  Report Type: 
  Country: None (occurrence: None)
  Receive Date: 20100712
  Receipt Date: 20100510
  Transmission Date: 20110219
  Serious: No
  Sender: FDA-Public Use
  Company Number: US-000255

PATIENT
  Sex: Female

DRUGS (1)
  1. KUVAN [Suspect]
     Indication: PHENYLKETONURIA
     Dosage: (ORAL)
     Route: 048

REACTIONS (1)
  - ABDOMINAL PAIN UPPER [None]
